FAERS Safety Report 5815045-4 (Version None)
Quarter: 2008Q3

REPORT INFORMATION
  Report Type: 
  Country: None (occurrence: None)
  Receive Date: 20080718
  Receipt Date: 20080716
  Transmission Date: 20090109
  Serious: Yes (Other)
  Sender: FDA-Public Use
  Company Number: B0529388A

PATIENT
  Age: 85 Year
  Sex: Male

DRUGS (4)
  1. PAXIL [Suspect]
     Indication: DRUG USE FOR UNKNOWN INDICATION
     Route: 048
  2. CRAVIT [Concomitant]
     Route: 065
  3. KLARICID [Concomitant]
     Route: 048
  4. FIRSTCIN [Concomitant]
     Route: 042

REACTIONS (3)
  - ANOREXIA [None]
  - DELIRIUM [None]
  - MYOCLONUS [None]
